FAERS Safety Report 9933767 (Version 2)
Quarter: 2014Q1

REPORT INFORMATION
  Report Type: Report from Study
  Country: US (occurrence: US)
  Receive Date: 20140228
  Receipt Date: 20140228
  Transmission Date: 20141002
  Serious: No
  Sender: FDA-Public Use
  Company Number: US-MYLANLABS-2013S1013154

PATIENT
  Age: 64 Year
  Sex: Female

DRUGS (3)
  1. AMNESTEEM CAPSULES [Suspect]
     Indication: ROSACEA
     Route: 048
     Dates: start: 201305, end: 20130612
  2. AMNESTEEM CAPSULES [Suspect]
     Indication: OFF LABEL USE
     Route: 048
     Dates: start: 201305, end: 20130612
  3. CLARAVIS [Suspect]
     Indication: ROSACEA
     Route: 048
     Dates: start: 201304, end: 201305

REACTIONS (2)
  - Drug ineffective for unapproved indication [Not Recovered/Not Resolved]
  - Rosacea [Not Recovered/Not Resolved]
